FAERS Safety Report 4692475-8 (Version None)
Quarter: 2005Q3

REPORT INFORMATION
  Report Type: 
  Country: None (occurrence: None)
  Receive Date: 20050613
  Receipt Date: 20050502
  Transmission Date: 20060218
  Serious: No
  Sender: FDA-Public Use
  Company Number: 2005-00802

PATIENT
  Age: 79 Year
  Sex: Male

DRUGS (10)
  1. VELCADE [Suspect]
     Indication: ACCIDENTAL EXPOSURE
     Dosage: 3.50 MG, SINGLE, SUBCUTANEOUS
     Route: 058
     Dates: start: 20050413, end: 20050413
  2. AZACITIDINE (AZACITIDINE) [Concomitant]
  3. ACETYLSALICYLIC ACID SRT [Concomitant]
  4. TRIAMTERENE AND HYDROCHLOROTHIAZID (HYDROCHLOROTHIAZIDE, TRIAMTERENE) [Concomitant]
  5. LIPITOR [Concomitant]
  6. TOPROL-XL [Concomitant]
  7. CARDURA [Concomitant]
  8. NEXIUM (ESOMPERAZOLE) [Concomitant]
  9. PREDNISONE [Concomitant]
  10. AVAPRO [Concomitant]

REACTIONS (4)
  - ACCIDENTAL EXPOSURE [None]
  - APPLICATION SITE REACTION [None]
  - INJECTION SITE ERYTHEMA [None]
  - MEDICATION ERROR [None]
